FAERS Safety Report 8935734 (Version 3)
Quarter: 2013Q1

REPORT INFORMATION
  Report Type: Spontaneous
  Country: US (occurrence: US)
  Receive Date: 20121130
  Receipt Date: 20130218
  Transmission Date: 20140127
  Serious: Yes (Other)
  Sender: FDA-Public Use
  Company Number: US-BRISTOL-MYERS SQUIBB COMPANY-17145202

PATIENT
  Age: 63 Year
  Sex: Female

DRUGS (1)
  1. ORENCIA FOR INJ 250 MG/VIAL [Suspect]
     Indication: RHEUMATOID ARTHRITIS
     Dosage: NO OF INF:3?LAST INF:1NOV12,25JAN13
     Route: 042
     Dates: start: 201209

REACTIONS (3)
  - Rotator cuff syndrome [Unknown]
  - Road traffic accident [Unknown]
  - Sneezing [Unknown]
